FAERS Safety Report 12261844 (Version 1)
Quarter: 2016Q2

REPORT INFORMATION
  Report Type: Spontaneous
  Country: KR (occurrence: KR)
  Receive Date: 20160413
  Receipt Date: 20160413
  Transmission Date: 20160815
  Serious: Yes (Hospitalization)
  Sender: FDA-Public Use
  Company Number: KR-EMD SERONO-8077029

PATIENT
  Age: 66 Year
  Sex: Male

DRUGS (2)
  1. REBIF [Suspect]
     Active Substance: INTERFERON BETA-1A
     Indication: MULTIPLE SCLEROSIS
     Dosage: TITRATION DOSE (40 PERCENT)
     Route: 058
     Dates: start: 20160314
  2. REBIF [Suspect]
     Active Substance: INTERFERON BETA-1A
     Route: 058
     Dates: start: 20160328

REACTIONS (2)
  - Feeling hot [Unknown]
  - Hemiparesis [Unknown]

NARRATIVE: CASE EVENT DATE: 20160329
